FAERS Safety Report 23231037 (Version 1)
Quarter: 2023Q4

REPORT INFORMATION
  Report Type: Report from Study
  Country: PT (occurrence: PT)
  Receive Date: 20231127
  Receipt Date: 20231127
  Transmission Date: 20240110
  Serious: Yes (Other)
  Sender: FDA-Public Use
  Company Number: PT-SUN PHARMACEUTICAL INDUSTRIES LTD-2023R1-420344

PATIENT
  Age: 4 Year
  Sex: Male

DRUGS (2)
  1. METHYLPREDNISOLONE [Suspect]
     Active Substance: METHYLPREDNISOLONE
     Indication: Kawasaki^s disease
     Dosage: 30 MILLIGRAM/KILOGRAM, QD
     Route: 042
  2. ASPIRIN [Suspect]
     Active Substance: ASPIRIN
     Indication: Kawasaki^s disease
     Dosage: 2 MILLIGRAM/KILOGRAM, QD
     Route: 065

REACTIONS (2)
  - Condition aggravated [Unknown]
  - Disease progression [Unknown]
